FAERS Safety Report 12002909 (Version 1)
Quarter: 2016Q1

REPORT INFORMATION
  Report Type: Spontaneous
  Country: US (occurrence: US)
  Receive Date: 20160204
  Receipt Date: 20160204
  Transmission Date: 20160526
  Serious: Yes (Hospitalization, Other)
  Sender: FDA-Public Use
  Company Number: US-BAUSCH-BL-2016-002403

PATIENT
  Age: 84 Year
  Sex: Male
  Weight: 83.99 kg

DRUGS (17)
  1. CALCIUM [Concomitant]
     Active Substance: CALCIUM
     Indication: SUPPLEMENTATION THERAPY
     Route: 048
  2. CALCIUM [Concomitant]
     Active Substance: CALCIUM
     Indication: CARDIAC MURMUR
  3. NORITATE [Concomitant]
     Active Substance: METRONIDAZOLE
     Indication: CARDIAC MURMUR
  4. RAMIPRIL. [Concomitant]
     Active Substance: RAMIPRIL
     Indication: HYPERTENSION
     Route: 048
  5. SIMVASTATIN. [Concomitant]
     Active Substance: SIMVASTATIN
     Indication: BLOOD CHOLESTEROL INCREASED
     Route: 048
  6. METOPROLOL TARTRATE. [Concomitant]
     Active Substance: METOPROLOL TARTRATE
     Indication: CARDIAC MURMUR
  7. TEARS II [Concomitant]
     Indication: DRY EYE
     Dosage: AS NEEDED
     Route: 047
  8. TEARS II [Concomitant]
     Indication: CARDIAC MURMUR
  9. BALSALAZIDE DISODIUM. [Suspect]
     Active Substance: BALSALAZIDE DISODIUM
     Indication: CROHN^S DISEASE
     Route: 048
  10. NORITATE [Concomitant]
     Active Substance: METRONIDAZOLE
     Indication: DRY SKIN
     Route: 061
  11. AMLODIPINE BESYLATE. [Concomitant]
     Active Substance: AMLODIPINE BESYLATE
     Indication: HYPERTENSION
     Route: 048
  12. METOPROLOL TARTRATE. [Concomitant]
     Active Substance: METOPROLOL TARTRATE
     Indication: HEART RATE INCREASED
     Route: 048
     Dates: start: 201312
  13. PROBIOTIC [Concomitant]
     Active Substance: PROBIOTICS NOS
     Indication: SUPPLEMENTATION THERAPY
     Dosage: 20 BILLION UNITS
     Route: 048
     Dates: start: 2014
  14. MULTIPLE VITAMIN [Concomitant]
     Active Substance: VITAMINS
     Indication: VITAMIN SUPPLEMENTATION
     Route: 048
  15. ALPRAZOLAM. [Suspect]
     Active Substance: ALPRAZOLAM
     Indication: POST-TRAUMATIC STRESS DISORDER
     Dosage: 1 IN THE AM, 1 AT 5 PM, AND 2 AT BEDTIME
     Route: 048
     Dates: start: 2010
  16. MULTIPLE VITAMIN [Concomitant]
     Active Substance: VITAMINS
     Indication: CARDIAC MURMUR
  17. COLAZAL [Suspect]
     Active Substance: BALSALAZIDE DISODIUM
     Indication: CROHN^S DISEASE
     Route: 048
     Dates: start: 2004

REACTIONS (5)
  - Vascular graft [Unknown]
  - Seizure [Not Recovered/Not Resolved]
  - Colitis [Not Recovered/Not Resolved]
  - Gastric infection [Not Recovered/Not Resolved]
  - Mesenteric venous occlusion [Recovered/Resolved]

NARRATIVE: CASE EVENT DATE: 201312
